FAERS Safety Report 24264204 (Version 1)
Quarter: 2024Q3

REPORT INFORMATION
  Report Type: Spontaneous
  Country: US (occurrence: US)
  Receive Date: 20240829
  Receipt Date: 20240829
  Transmission Date: 20241016
  Serious: Yes (Other)
  Sender: AMGEN
  Company Number: US-AMGEN-USASP2024169129

PATIENT
  Age: 73 Year
  Sex: Female

DRUGS (3)
  1. PREDNISONE [Suspect]
     Active Substance: PREDNISONE
     Indication: Immunosuppression
     Dosage: 20 MILLIGRAM, QD
     Route: 065
  2. PREDNISONE [Suspect]
     Active Substance: PREDNISONE
     Indication: Immune thrombocytopenia
  3. SIROLIMUS [Concomitant]
     Active Substance: SIROLIMUS
     Dosage: 2 MILLIGRAM, QD
     Route: 048

REACTIONS (4)
  - Pancytopenia [Recovering/Resolving]
  - Encephalitis herpes [Unknown]
  - Oral herpes [Unknown]
  - Enterococcus test positive [Unknown]
